FAERS Safety Report 25652610 (Version 2)
Quarter: 2025Q3

REPORT INFORMATION
  Report Type: Report from Study
  Country: US (occurrence: US)
  Receive Date: 20250807
  Receipt Date: 20250919
  Transmission Date: 20251021
  Serious: No
  Sender: SUNOVION
  Company Number: US-SMPA-2025SPA009848

PATIENT
  Age: 73 Year
  Sex: Male

DRUGS (20)
  1. ORGOVYX [Suspect]
     Active Substance: RELUGOLIX
     Indication: Prostate cancer
     Route: 048
     Dates: start: 20250726, end: 20250726
  2. ORGOVYX [Suspect]
     Active Substance: RELUGOLIX
     Route: 048
  3. ACETAMINOPHEN [Concomitant]
     Active Substance: ACETAMINOPHEN
  4. ASPERCREME WITH LIDOCAINE [Concomitant]
     Active Substance: LIDOCAINE
  5. ASPIRIN [Concomitant]
     Active Substance: ASPIRIN
  6. CIMZIA [Concomitant]
     Active Substance: CERTOLIZUMAB PEGOL
  7. BEMPEDOIC ACID [Concomitant]
     Active Substance: BEMPEDOIC ACID
  8. BENAZEPRIL HYDROCHLORIDE [Concomitant]
     Active Substance: BENAZEPRIL HYDROCHLORIDE
  9. CERTOLIZUMAB PEGOL [Concomitant]
     Active Substance: CERTOLIZUMAB PEGOL
  10. Coq10 + omega 3 [Concomitant]
  11. FISH OIL [Concomitant]
     Active Substance: FISH OIL
  12. EZETIMIBE [Concomitant]
     Active Substance: EZETIMIBE
  13. GABAPENTIN [Concomitant]
     Active Substance: GABAPENTIN
  14. KRILL OIL [Concomitant]
     Active Substance: DIETARY SUPPLEMENT\KRILL OIL
  15. METOPROLOL SUCCINATE [Concomitant]
     Active Substance: METOPROLOL SUCCINATE
  16. OMEPRAZOLE [Concomitant]
     Active Substance: OMEPRAZOLE
  17. One Daily Multi Vitamins [Concomitant]
  18. PREDNISONE [Concomitant]
     Active Substance: PREDNISONE
  19. VOLTAREN [Concomitant]
     Active Substance: DICLOFENAC SODIUM
  20. Arthritis Pain [Concomitant]

REACTIONS (10)
  - Rhinorrhoea [Unknown]
  - Paranasal sinus hypersecretion [Unknown]
  - Pain [Unknown]
  - Abdominal pain upper [Recovered/Resolved]
  - Abdominal discomfort [Recovered/Resolved]
  - Nausea [Recovered/Resolved]
  - Arthritis [Unknown]
  - Hot flush [Recovered/Resolved]
  - Insomnia [Unknown]
  - Constipation [Unknown]

NARRATIVE: CASE EVENT DATE: 20250701
